FAERS Safety Report 6872062-3 (Version None)
Quarter: 2010Q3

REPORT INFORMATION
  Report Type: 
  Country: None (occurrence: None)
  Receive Date: 20100723
  Receipt Date: 20100713
  Transmission Date: 20110219
  Serious: Yes (Other)
  Sender: FDA-Public Use
  Company Number: AU-PFIZER INC-2010065657

PATIENT
  Age: 63 Year

DRUGS (1)
  1. XALATAN [Suspect]
     Indication: GLAUCOMA
     Dosage: UNK, RIGHT EYE, NOCTE
     Route: 061

REACTIONS (3)
  - DRUG INEFFECTIVE [None]
  - DRUG TOLERANCE [None]
  - INTRAOCULAR PRESSURE INCREASED [None]
